FAERS Safety Report 5859452-2 (Version None)
Quarter: 2008Q3

REPORT INFORMATION
  Report Type: 
  Country: None (occurrence: None)
  Receive Date: 20080826
  Receipt Date: 20080818
  Transmission Date: 20090109
  Serious: Yes (Other)
  Sender: FDA-Public Use
  Company Number: 08H-163-0314721-00

PATIENT
  Age: 50 Year
  Sex: Female
  Weight: 129.2 kg

DRUGS (3)
  1. HEPARIN SODIUM INJECTION [Suspect]
     Indication: EMBOLISM VENOUS
     Dosage: CONTINUOUS, INFUSION
  2. PLATELETS (PLATELETS ) [Concomitant]
  3. METHYLPREDNISOLONE [Concomitant]

REACTIONS (5)
  - BLISTER [None]
  - CYANOSIS [None]
  - DEEP VEIN THROMBOSIS [None]
  - HEPARIN-INDUCED THROMBOCYTOPENIA [None]
  - PULMONARY EMBOLISM [None]
